FAERS Safety Report 16925355 (Version 1)
Quarter: 2019Q4

REPORT INFORMATION
  Report Type: Spontaneous
  Country: US (occurrence: US)
  Receive Date: 20190823
  Receipt Date: 20190823
  Transmission Date: 20200122
  Serious: No
  Sender: FDA-Public Use
  Company Number: None

PATIENT
  Age: 53 Year
  Sex: Female

DRUGS (1)
  1. H.P. ACTHAR [Suspect]
     Active Substance: CORTICOTROPIN
     Dosage: ?          OTHER STRENGTH:80 UNITS;OTHER DOSE:80 UNITS;?
     Route: 058
     Dates: start: 201907, end: 201907

REACTIONS (2)
  - Confusional state [None]
  - Blood glucose increased [None]

NARRATIVE: CASE EVENT DATE: 20190710
